FAERS Safety Report 11490792 (Version 2)
Quarter: 2017Q1

REPORT INFORMATION
  Report Type: Spontaneous
  Country: US (occurrence: US)
  Receive Date: 20150910
  Receipt Date: 20170206
  Transmission Date: 20170428
  Serious: Yes (Other)
  Sender: FDA-Public Use
  Company Number: US-ELI_LILLY_AND_COMPANY-US201509001448

PATIENT
  Sex: Male

DRUGS (4)
  1. CYMBALTA [Suspect]
     Active Substance: DULOXETINE HYDROCHLORIDE
     Dosage: 60 MG, QD
     Route: 048
     Dates: start: 20101115
  2. CYMBALTA [Suspect]
     Active Substance: DULOXETINE HYDROCHLORIDE
     Indication: PAIN
     Dosage: 30 MG, QD
     Route: 048
  3. CYMBALTA [Suspect]
     Active Substance: DULOXETINE HYDROCHLORIDE
     Indication: DEPRESSION
     Dosage: 60 MG, QD
     Route: 048
     Dates: start: 20090610, end: 20101007
  4. CYMBALTA [Suspect]
     Active Substance: DULOXETINE HYDROCHLORIDE
     Dosage: 90 MG, QD
     Route: 048
     Dates: start: 20101008, end: 20101114

REACTIONS (14)
  - Vertigo [Unknown]
  - Hypomania [Unknown]
  - Dizziness [Unknown]
  - Irritability [Unknown]
  - Agitation [Unknown]
  - Headache [Unknown]
  - Drug withdrawal syndrome [Unknown]
  - Sleep disorder [Unknown]
  - Nausea [Unknown]
  - Seizure [Unknown]
  - Nightmare [Unknown]
  - Mood swings [Unknown]
  - Vomiting [Unknown]
  - Hyperhidrosis [Unknown]
